FAERS Safety Report 13544465 (Version 1)
Quarter: 2017Q2

REPORT INFORMATION
  Report Type: Other
  Country: JP (occurrence: JP)
  Receive Date: 20170515
  Receipt Date: 20170515
  Transmission Date: 20170830
  Serious: Yes (Hospitalization, Other)
  Sender: FDA-Public Use
  Company Number: JP-HETERO LABS LTD-2020732

PATIENT
  Age: 55 Year
  Sex: Male

DRUGS (1)
  1. ACYCLOVIR. [Suspect]
     Active Substance: ACYCLOVIR
     Indication: HERPES SIMPLEX
     Route: 065

REACTIONS (3)
  - Drug ineffective [Unknown]
  - Necrotising retinitis [Recovering/Resolving]
  - Herpes simplex encephalitis [Recovering/Resolving]
